FAERS Safety Report 14845901 (Version 1)
Quarter: 2018Q2

REPORT INFORMATION
  Report Type: Report from Study
  Country: US (occurrence: US)
  Receive Date: 20180504
  Receipt Date: 20180504
  Transmission Date: 20180711
  Serious: Yes (Hospitalization, Other)
  Sender: FDA-Public Use
  Company Number: US-GILEAD-2018-0336417

PATIENT
  Age: 54 Year
  Sex: Female

DRUGS (5)
  1. AMBRISENTAN [Suspect]
     Active Substance: AMBRISENTAN
     Indication: PRODUCT USED FOR UNKNOWN INDICATION
     Dosage: 5 MG, QD
     Route: 065
  2. VELETRI [Concomitant]
     Active Substance: EPOPROSTENOL
  3. NABUMETONE BMM PHARMA [Concomitant]
  4. DILANTIN [Concomitant]
     Active Substance: PHENYTOIN
  5. ADEMPAS [Concomitant]
     Active Substance: RIOCIGUAT

REACTIONS (1)
  - Complication associated with device [Unknown]
